FAERS Safety Report 6208742-2 (Version None)
Quarter: 2009Q2

REPORT INFORMATION
  Report Type: 
  Country: None (occurrence: None)
  Receive Date: 20090529
  Receipt Date: 20090525
  Transmission Date: 20091009
  Serious: Yes (Hospitalization)
  Sender: FDA-Public Use
  Company Number: CH-BRISTOL-MYERS SQUIBB COMPANY-14639207

PATIENT
  Age: 75 Year
  Sex: Female

DRUGS (10)
  1. CARBIDOPA + LEVODOPA [Suspect]
     Indication: PARKINSON'S DISEASE
     Route: 048
  2. TRAMADOL HCL [Suspect]
     Indication: PAIN
     Dosage: CAPSULE FORM
     Route: 048
     Dates: start: 20080801, end: 20090101
  3. ZOLPIDEM TARTRATE [Suspect]
     Indication: SLEEP DISORDER
     Dosage: TABLET FORM
     Route: 048
     Dates: start: 20080801
  4. SIFROL [Suspect]
     Indication: PARKINSON'S DISEASE
     Route: 048
  5. BISOPROLOL FUMARATE [Concomitant]
  6. CITALOPRAM HYDROBROMIDE [Concomitant]
  7. IRON [Concomitant]
  8. METFORMIN HCL [Concomitant]
  9. TRIATEC [Concomitant]
  10. ST JOHN WORT [Concomitant]

REACTIONS (1)
  - DELIRIUM [None]
